FAERS Safety Report 15739621 (Version 1)
Quarter: 2018Q4

REPORT INFORMATION
  Report Type: Spontaneous
  Country: US (occurrence: US)
  Receive Date: 20181218
  Receipt Date: 20181218
  Transmission Date: 20190205
  Serious: Yes (Other)
  Sender: FDA-Public Use
  Company Number: None

PATIENT
  Age: 57 Year
  Sex: Male
  Weight: 85.5 kg

DRUGS (1)
  1. BACITRACIN OINTMENT [Suspect]
     Active Substance: BACITRACIN
     Indication: WOUND TREATMENT
     Dosage: ?          QUANTITY:1 TOPICAL;?
     Route: 062
     Dates: start: 20181218, end: 20181218

REACTIONS (4)
  - Hypersensitivity [None]
  - Application site erythema [None]
  - Throat tightness [None]
  - Application site pruritus [None]

NARRATIVE: CASE EVENT DATE: 20181218
